FAERS Safety Report 20736793 (Version 1)
Quarter: 2022Q2

REPORT INFORMATION
  Report Type: Spontaneous
  Country: US (occurrence: US)
  Receive Date: 20220421
  Receipt Date: 20220421
  Transmission Date: 20220721
  Serious: No
  Sender: FDA-Public Use
  Company Number: US-Kiniksa Pharmaceuticals Ltd.-2022KPU000114

PATIENT
  Age: 29 Year
  Sex: Female

DRUGS (2)
  1. ARCALYST [Suspect]
     Active Substance: RILONACEPT
     Indication: Pericarditis
     Route: 058
     Dates: start: 20220123
  2. ARCALYST [Suspect]
     Active Substance: RILONACEPT
     Indication: Pericarditis

REACTIONS (6)
  - Injection site erythema [Unknown]
  - Injection site erythema [Recovered/Resolved]
  - Swelling [Unknown]
  - Musculoskeletal discomfort [Unknown]
  - Dizziness [Unknown]
  - Lymphadenopathy [Unknown]

NARRATIVE: CASE EVENT DATE: 20220123
